FAERS Safety Report 9119694 (Version 1)
Quarter: 2013Q1

REPORT INFORMATION
  Report Type: Spontaneous
  Country: US (occurrence: US)
  Receive Date: 20130226
  Receipt Date: 20130226
  Transmission Date: 20140127
  Serious: No
  Sender: FDA-Public Use
  Company Number: US-009507513-1302USA010308

PATIENT
  Age: 20 None
  Sex: Female
  Weight: 81.18 kg

DRUGS (1)
  1. IMPLANON [Suspect]
     Indication: CONTRACEPTION
     Dosage: 1 ROD FOR 3 YEARS
     Route: 059
     Dates: start: 20110610

REACTIONS (6)
  - Back pain [Unknown]
  - Pain in extremity [Unknown]
  - Amenorrhoea [Unknown]
  - Weight increased [Unknown]
  - Skin striae [Unknown]
  - Medical device complication [Unknown]
